FAERS Safety Report 25253246 (Version 1)
Quarter: 2025Q2

REPORT INFORMATION
  Report Type: Spontaneous
  Country: US (occurrence: US)
  Receive Date: 20250430
  Receipt Date: 20250430
  Transmission Date: 20250717
  Serious: Yes (Hospitalization, Other)
  Sender: JUBILANT
  Company Number: US-JUBILANT CADISTA PHARMACEUTICALS-2025US000479

PATIENT
  Age: 57 Year
  Sex: Female

DRUGS (5)
  1. IRBESARTAN [Interacting]
     Active Substance: IRBESARTAN
     Indication: Hypertension
     Dosage: 300 MG, ONCE DAILY
     Route: 065
  2. CALCIUM CARBONATE [Suspect]
     Active Substance: CALCIUM CARBONATE
     Indication: Hypertension
     Route: 065
  3. CALCITRIOL [Suspect]
     Active Substance: CALCITRIOL
     Indication: Hypertension
     Dosage: 0.5 MCG 2 TIMES PER DAY
     Route: 065
  4. CHOLECALCIFEROL [Suspect]
     Active Substance: CHOLECALCIFEROL
     Indication: Hypertension
     Dosage: 10000 UNITS ONCE DAILY
     Route: 065
  5. CHLORTHALIDONE [Interacting]
     Active Substance: CHLORTHALIDONE
     Indication: Hypertension
     Dosage: 25 MG, ONCE PER DAY
     Route: 065

REACTIONS (3)
  - Acute kidney injury [Recovered/Resolved]
  - Hypercalcaemia [Recovered/Resolved]
  - Drug interaction [Unknown]
